FAERS Safety Report 5162105-X (Version None)
Quarter: 2006Q4

REPORT INFORMATION
  Report Type: 
  Country: None (occurrence: None)
  Receive Date: 20061121
  Receipt Date: 20061106
  Transmission Date: 20070319
  Serious: Yes (Life-Threatening, Hospitalization)
  Sender: FDA-Public Use
  Company Number: DSA_27935_2006

PATIENT
  Age: 20 Year
  Sex: Female

DRUGS (12)
  1. TAVOR [Suspect]
     Dosage: 1 MG Q DAY PO
     Route: 048
     Dates: start: 20060228, end: 20060303
  2. TAVOR /00273201/ [Suspect]
     Dosage: 1.5 MG Q DAY PO
     Route: 048
     Dates: start: 20060222, end: 20060227
  3. ZYPREXA [Suspect]
     Dosage: 10 MG Q DAY PO
     Route: 048
     Dates: start: 20060224, end: 20060303
  4. ZYPREXA [Suspect]
     Dosage: 5 MG Q DAY PO
     Route: 048
     Dates: start: 20060222, end: 20060223
  5. APONAL [Suspect]
     Dosage: 150 MG Q DAY PO
     Route: 048
     Dates: start: 20060227, end: 20060303
  6. APONAL [Suspect]
     Dosage: 125 MG Q DAY PO
     Route: 048
     Dates: start: 20060215, end: 20060226
  7. APONAL [Suspect]
     Dosage: 100 MG Q DAY PO
     Route: 048
     Dates: start: 20060210, end: 20060214
  8. APONAL [Suspect]
     Dosage: 50 MG Q DAY PO
     Route: 048
     Dates: start: 20060203, end: 20060209
  9. ZOPICLONE [Concomitant]
  10. LEVOTHYROXINE SODIUM [Concomitant]
  11. KALINOR [Concomitant]
  12. MIRTAZAPINE [Concomitant]

REACTIONS (7)
  - ABDOMINAL PAIN UPPER [None]
  - BLOOD CHOLINESTERASE INCREASED [None]
  - GLUTAMATE DEHYDROGENASE INCREASED [None]
  - HEPATIC FAILURE [None]
  - NAUSEA [None]
  - SUICIDE ATTEMPT [None]
  - VOMITING [None]
